FAERS Safety Report 11571771 (Version 2)
Quarter: 2016Q4

REPORT INFORMATION
  Report Type: Spontaneous
  Country: US (occurrence: US)
  Receive Date: 20150929
  Receipt Date: 20161007
  Transmission Date: 20170206
  Serious: No
  Sender: FDA-Public Use
  Company Number: US-SA-2015SA117973

PATIENT
  Age: 69 Year
  Sex: Female
  Weight: 51.9 kg

DRUGS (13)
  1. CALTRATE [Concomitant]
     Active Substance: CALCIUM CARBONATE
     Route: 048
  2. VITAMIN D3 [Concomitant]
     Active Substance: CHOLECALCIFEROL
     Dosage: 1000 INTL UNITS ORAL CAPSULE: 3-4 CAP
     Route: 048
  3. CALCIUM [Concomitant]
     Active Substance: CALCIUM
  4. NEURONTIN [Concomitant]
     Active Substance: GABAPENTIN
     Dosage: 300 MG
  5. PREVACID [Concomitant]
     Active Substance: LANSOPRAZOLE
     Indication: GASTROOESOPHAGEAL REFLUX DISEASE
     Dosage: DELAYED RELEASE CAPSULE
     Route: 048
  6. MECLIZINE [Concomitant]
     Active Substance: MECLIZINE HYDROCHLORIDE
     Dosage: BID PRN
  7. VITAMIN B [Concomitant]
     Active Substance: VITAMIN B
  8. NUVIGIL [Concomitant]
     Active Substance: ARMODAFINIL
     Route: 048
  9. ANTIVERT [Concomitant]
     Active Substance: MECLIZINE HYDROCHLORIDE
     Indication: DIZZINESS
     Dosage: BID PRN AS NEEDED FOR DIZZINESS
     Route: 048
  10. VITAMIN C [Concomitant]
     Active Substance: ASCORBIC ACID
     Route: 048
  11. AUBAGIO [Suspect]
     Active Substance: TERIFLUNOMIDE
     Indication: MULTIPLE SCLEROSIS
     Route: 048
     Dates: start: 201409
  12. GABAPENTIN. [Concomitant]
     Active Substance: GABAPENTIN
  13. REBIF [Concomitant]
     Active Substance: INTERFERON BETA-1A
     Dosage: 44 MCG/0.5 ML SUBCUTANEOUS SOLUTION, 3X WEEK

REACTIONS (1)
  - Vertigo [Not Recovered/Not Resolved]

NARRATIVE: CASE EVENT DATE: 20150803
